FAERS Safety Report 7892392-6 (Version None)
Quarter: 2011Q4

REPORT INFORMATION
  Report Type: 
  Country: None (occurrence: None)
  Receive Date: 20111101
  Receipt Date: 20111024
  Transmission Date: 20120403
  Serious: Yes (Other)
  Sender: FDA-Public Use
  Company Number: 1086027

PATIENT
  Age: 60 Year
  Sex: Male

DRUGS (3)
  1. ZOFRAN [Concomitant]
  2. (DEXAMETHASONE) [Concomitant]
  3. IRINOTECAN HCL [Suspect]
     Indication: COLORECTAL CANCER
     Dosage: 360 MG MILLIGRAM(S)  INTRAVENOUS (NOT OTHERWISE SPECIFIED)
     Route: 042
     Dates: start: 20111012, end: 20111012

REACTIONS (2)
  - SALIVARY HYPERSECRETION [None]
  - THROAT IRRITATION [None]
